FAERS Safety Report 15766298 (Version 14)
Quarter: 2021Q4

REPORT INFORMATION
  Report Type: Spontaneous
  Country: US (occurrence: US)
  Receive Date: 20181227
  Receipt Date: 20211207
  Transmission Date: 20220303
  Serious: No
  Sender: FDA-Public Use
  Company Number: US-PFIZER INC-2018438568

PATIENT
  Age: 53 Year
  Sex: Female

DRUGS (2)
  1. LYRICA [Suspect]
     Active Substance: PREGABALIN
     Indication: Limb injury
     Dosage: 300 MG, 2X/DAY
     Route: 048
     Dates: start: 20180720
  2. LYRICA [Suspect]
     Active Substance: PREGABALIN
     Indication: Nerve injury
     Dosage: 300 MG, 3X/DAY (EVERY 8 HOURS/ TAKE 1 CAPSULE (300 MG TOTAL) BY MOUTH 3 TIMES DAILY)
     Route: 048

REACTIONS (5)
  - Prescribed overdose [Unknown]
  - Nasopharyngitis [Unknown]
  - Pain [Unknown]
  - Illness [Unknown]
  - Influenza like illness [Unknown]
